FAERS Safety Report 5366025-7 (Version None)
Quarter: 2007Q2

REPORT INFORMATION
  Report Type: 
  Country: None (occurrence: None)
  Receive Date: 20070611
  Receipt Date: 20070226
  Transmission Date: 20071010
  Serious: Yes (Disabling)
  Sender: FDA-Public Use
  Company Number: USA-2007-0026613

PATIENT
  Age: 55 Year
  Sex: Male

DRUGS (3)
  1. OXYCODONE HCL [Suspect]
     Indication: SURGERY
     Dosage: 20 MG, Q8H
     Dates: start: 20060801
  2. OXYCODONE HCL [Suspect]
     Indication: PAIN
     Dosage: 30 MG, Q6H, PRN
  3. LYRICA [Concomitant]

REACTIONS (1)
  - INADEQUATE ANALGESIA [None]
